FAERS Safety Report 6819798-8 (Version None)
Quarter: 2010Q3

REPORT INFORMATION
  Report Type: 
  Country: None (occurrence: None)
  Receive Date: 20100707
  Receipt Date: 20100623
  Transmission Date: 20110219
  Serious: Yes (Other)
  Sender: FDA-Public Use
  Company Number: PHHY2010JP42429

PATIENT
  Age: 5 Year
  Sex: Male

DRUGS (2)
  1. ZADITEN [Suspect]
     Indication: OTITIS MEDIA
     Dosage: UNK
     Route: 048
     Dates: start: 20100615, end: 20100617
  2. CLAVAMOX [Concomitant]
     Dosage: UNK
     Route: 048
     Dates: start: 20100615, end: 20100617

REACTIONS (1)
  - ABNORMAL BEHAVIOUR [None]
